FAERS Safety Report 5509761-1 (Version None)
Quarter: 2007Q4

REPORT INFORMATION
  Report Type: 
  Country: None (occurrence: None)
  Receive Date: 20071107
  Receipt Date: 20071107
  Transmission Date: 20080405
  Serious: Yes (Hospitalization)
  Sender: FDA-Public Use
  Company Number: None

PATIENT
  Age: 86 Year
  Sex: Male

DRUGS (3)
  1. FLUOXETINE [Suspect]
     Indication: BENIGN PROSTATIC HYPERPLASIA
     Dosage: 10MG EVERY DAY PO
     Route: 048
     Dates: start: 20060829, end: 20070925
  2. FLUOXETINE [Suspect]
     Indication: DEPRESSION
     Dosage: 10MG EVERY DAY PO
     Route: 048
     Dates: start: 20060829, end: 20070925
  3. TERAZOSIN HCL [Suspect]
     Dosage: 2MG EVERY DAY PO
     Route: 048
     Dates: start: 19971103, end: 20070925

REACTIONS (3)
  - ASTHENIA [None]
  - FALL [None]
  - HYPOTENSION [None]
